FAERS Safety Report 6411734-1 (Version None)
Quarter: 2009Q4

REPORT INFORMATION
  Report Type: 
  Country: None (occurrence: None)
  Receive Date: 20091020
  Receipt Date: 20061009
  Transmission Date: 20100525
  Serious: Yes (Hospitalization)
  Sender: FDA-Public Use
  Company Number: 2009009231

PATIENT

DRUGS (3)
  1. ACTIQ [Suspect]
     Dosage: 1800 MCG (600 MCG, 3 IN 1 D), BU
     Route: 002
  2. OXYCONTIN [Concomitant]
  3. PERCOCET [Concomitant]

REACTIONS (1)
  - UNEVALUABLE EVENT [None]
